FAERS Safety Report 7834670-2 (Version None)
Quarter: 2011Q4

REPORT INFORMATION
  Report Type: 
  Country: None (occurrence: None)
  Receive Date: 20111020
  Receipt Date: 20111004
  Transmission Date: 20120403
  Serious: Yes (Other)
  Sender: FDA-Public Use
  Company Number: 2011MA014911

PATIENT
  Age: 28 Year
  Sex: Female

DRUGS (3)
  1. CODEINE SULFATE [Suspect]
     Indication: INTENTIONAL OVERDOSE
     Dosage: 20 TABLET;X1;PO
     Route: 048
  2. FEVERALL [Suspect]
     Indication: INTENTIONAL OVERDOSE
     Dosage: 64 TABLETS;X1;PO
     Route: 048
  3. CITALOPRAM HYDROBROMIDE [Suspect]
     Indication: INTENTIONAL OVERDOSE
     Dosage: 4 WEEK SUPPLY;X1;PO
     Route: 048

REACTIONS (5)
  - SUICIDE ATTEMPT [None]
  - MULTIPLE DRUG OVERDOSE INTENTIONAL [None]
  - LOSS OF CONSCIOUSNESS [None]
  - NEGLECT OF PERSONAL APPEARANCE [None]
  - MAJOR DEPRESSION [None]
